FAERS Safety Report 13339031 (Version 1)
Quarter: 2017Q1

REPORT INFORMATION
  Report Type: Spontaneous
  Country: US (occurrence: US)
  Receive Date: 20170315
  Receipt Date: 20170315
  Transmission Date: 20170428
  Serious: Yes (Other)
  Sender: FDA-Public Use
  Company Number: US-PFIZER INC-2017106006

PATIENT
  Age: 61 Year
  Sex: Male
  Weight: 100 kg

DRUGS (11)
  1. SPIRONOLACTONE. [Concomitant]
     Active Substance: SPIRONOLACTONE
     Indication: PROPHYLAXIS
     Dosage: 25 MG, 1X/DAY
  2. DILTIAZEM HCL [Suspect]
     Active Substance: DILTIAZEM HYDROCHLORIDE
     Dosage: 180 MG, 1X/DAY
  3. LOSARTAN. [Suspect]
     Active Substance: LOSARTAN
     Dosage: 50 MG, 2X/DAY
  4. MAGNESIUM [Concomitant]
     Active Substance: MAGNESIUM
     Indication: GASTRIC DISORDER
     Dosage: 500 MG, 2X/DAY
  5. CADUET [Concomitant]
     Active Substance: AMLODIPINE BESYLATE\ATORVASTATIN CALCIUM
  6. TIKOSYN [Suspect]
     Active Substance: DOFETILIDE
     Indication: ATRIAL FIBRILLATION
     Dosage: 250 UG, 1X/DAY
  7. L-THYROXINE /00068001/ [Concomitant]
     Active Substance: LEVOTHYROXINE
     Indication: THYROID DISORDER
     Dosage: 50 UG, 1X/DAY
  8. LIOTHYRONINE SOD. [Concomitant]
     Indication: THYROID DISORDER
     Dosage: 5MCG TWO TABLETS EVERY MORNING
  9. AMITRIPTYLINE [Concomitant]
     Active Substance: AMITRIPTYLINE
     Indication: SLEEP DISORDER
     Dosage: 25 MG, 1X/DAY
  10. ATORVASTATIN [Concomitant]
     Active Substance: ATORVASTATIN
     Indication: BLOOD CHOLESTEROL
     Dosage: 40 MG, 1X/DAY
  11. SAVAYSA [Concomitant]
     Active Substance: EDOXABAN TOSYLATE
     Indication: ANTICOAGULANT THERAPY
     Dosage: 60 MG, 1X/DAY

REACTIONS (2)
  - Electrocardiogram QT prolonged [Unknown]
  - Headache [Recovered/Resolved]
